FAERS Safety Report 4932534-5 (Version None)
Quarter: 2006Q1

REPORT INFORMATION
  Report Type: 
  Country: None (occurrence: None)
  Receive Date: 20060303
  Receipt Date: 20060207
  Transmission Date: 20060701
  Serious: Yes (Death)
  Sender: FDA-Public Use
  Company Number: US-MERCK-0602USA02269

PATIENT
  Age: 73 Year
  Sex: Female
  Weight: 83 kg

DRUGS (6)
  1. VIOXX [Suspect]
     Route: 048
     Dates: end: 20010928
  2. CELEXA [Concomitant]
     Route: 048
  3. ATIVAN [Concomitant]
     Route: 048
  4. RESTORIL [Concomitant]
     Route: 048
     Dates: end: 20000926
  5. PEPCID [Concomitant]
     Route: 048
  6. PREVACID [Concomitant]
     Route: 048

REACTIONS (9)
  - ACTINIC KERATOSIS [None]
  - ANXIETY DISORDER [None]
  - ARRHYTHMIA [None]
  - COUGH [None]
  - HEPATITIS C [None]
  - NEOPLASM [None]
  - OEDEMA [None]
  - RENAL IMPAIRMENT [None]
  - SKIN LESION [None]
